FAERS Safety Report 12447969 (Version 2)
Quarter: 2016Q3

REPORT INFORMATION
  Report Type: Report from Study
  Country: BR (occurrence: BR)
  Receive Date: 20160608
  Receipt Date: 20160927
  Transmission Date: 20161109
  Serious: Yes (Hospitalization)
  Sender: FDA-Public Use
  Company Number: PHHY2015BR157946

PATIENT
  Sex: Male
  Weight: 67.68 kg

DRUGS (2)
  1. EXJADE [Suspect]
     Active Substance: DEFERASIROX
     Indication: SICKLE CELL ANAEMIA
     Dosage: 4 DF (30 MG/KG), QD
     Route: 048
  2. EXJADE [Suspect]
     Active Substance: DEFERASIROX
     Dosage: 45 MG/KG, QD (6 DF OF 500 MG)
     Route: 048

REACTIONS (8)
  - Pain [Unknown]
  - Vomiting [Unknown]
  - Pyrexia [Unknown]
  - Diarrhoea [Unknown]
  - Ocular icterus [Unknown]
  - Arthralgia [Unknown]
  - Abdominal pain upper [Unknown]
  - Weight increased [Unknown]
